FAERS Safety Report 26157995 (Version 1)
Quarter: 2025Q4

REPORT INFORMATION
  Report Type: Spontaneous
  Country: US (occurrence: None)
  Receive Date: 20251215
  Receipt Date: 20251215
  Transmission Date: 20260117
  Serious: Yes (Death)
  Sender: FDA-CTU
  Company Number: None

PATIENT
  Age: 83 Year
  Sex: Female

DRUGS (8)
  1. JULUCA [Suspect]
     Active Substance: DOLUTEGRAVIR SODIUM\RILPIVIRINE HYDROCHLORIDE
     Indication: HIV infection
     Dosage: OTHER QUANTITY : 50-25MG;?FREQUENCY : DAILY;
     Dates: end: 20251201
  2. VITAMIN D3 2,000IU TABLETS [Concomitant]
  3. ASPIRIN 81 MG EC LOW DOSE TABLETS [Concomitant]
  4. FAMOTIDINE [Concomitant]
     Active Substance: FAMOTIDINE
  5. FERROUS SULFATE 325MG (5GR) TABS [Concomitant]
  6. GAS-X EX-STR 125MG CHW TABLETS [Concomitant]
  7. POTASSIUM CL 10MEQ ER TABLETS [Concomitant]
  8. VITAMIN B-121000MCG SUBL TABS [Concomitant]

REACTIONS (1)
  - Death [None]

NARRATIVE: CASE EVENT DATE: 20251201
